FAERS Safety Report 17891286 (Version 1)
Quarter: 2020Q2

REPORT INFORMATION
  Report Type: Spontaneous
  Country: KR (occurrence: KR)
  Receive Date: 20200612
  Receipt Date: 20200612
  Transmission Date: 20200714
  Serious: Yes (Other)
  Sender: FDA-Public Use
  Company Number: NVSC2020KR164190

PATIENT
  Age: 30 Year
  Sex: Female

DRUGS (1)
  1. METHYLPREDNISOLONE. [Suspect]
     Active Substance: METHYLPREDNISOLONE
     Indication: OPHTHALMOPLEGIA
     Dosage: 1 G, QD
     Route: 042

REACTIONS (2)
  - Product use in unapproved indication [Unknown]
  - Ophthalmoplegia [Unknown]
